FAERS Safety Report 14028023 (Version 1)
Quarter: 2017Q3

REPORT INFORMATION
  Report Type: Spontaneous
  Country: US (occurrence: None)
  Receive Date: 20170929
  Receipt Date: 20170929
  Transmission Date: 20171128
  Serious: Yes (Life-Threatening, Hospitalization)
  Sender: FDA-Public Use
  Company Number: None

PATIENT
  Age: 69 Year
  Sex: Male
  Weight: 81.01 kg

DRUGS (1)
  1. AMIODARONE [Suspect]
     Active Substance: AMIODARONE
     Indication: ATRIAL FIBRILLATION
     Route: 048
     Dates: start: 20130516, end: 20170908

REACTIONS (10)
  - Hepatotoxicity [None]
  - Skin discolouration [None]
  - Pulmonary oedema [None]
  - Ventricular fibrillation [None]
  - Pulmonary toxicity [None]
  - Hepatic enzyme increased [None]
  - Pneumonia bacterial [None]
  - Hypotension [None]
  - Fluid overload [None]
  - Respiratory failure [None]

NARRATIVE: CASE EVENT DATE: 20170908
